FAERS Safety Report 19174892 (Version 2)
Quarter: 2021Q2

REPORT INFORMATION
  Report Type: Spontaneous
  Country: US (occurrence: US)
  Receive Date: 20210423
  Receipt Date: 20210604
  Transmission Date: 20210717
  Serious: Yes (Disabling, Other)
  Sender: FDA-Public Use
  Company Number: US-REGENERON PHARMACEUTICALS, INC.-2021-42979

PATIENT

DRUGS (3)
  1. EYLEA [Suspect]
     Active Substance: AFLIBERCEPT
     Indication: NEOVASCULAR AGE-RELATED MACULAR DEGENERATION
     Dosage: RIGHT EYE AS NEEDED
     Route: 031
     Dates: start: 2015, end: 20191204
  2. EYLEA [Suspect]
     Active Substance: AFLIBERCEPT
     Dosage: LEFT EYE EVERY 6 WEEKS
     Route: 031
     Dates: start: 20210224, end: 20210224
  3. EYLEA [Suspect]
     Active Substance: AFLIBERCEPT
     Indication: CHOROIDAL NEOVASCULARISATION
     Dosage: LEFT EYE EVERY 6 WEEKS
     Route: 031
     Dates: start: 2016

REACTIONS (2)
  - Drug ineffective [Unknown]
  - Blindness unilateral [Unknown]
